FAERS Safety Report 8910111 (Version 2)
Quarter: 2012Q4

REPORT INFORMATION
  Report Type: 
  Country: IT (occurrence: IT)
  Receive Date: 20121115
  Receipt Date: 20121231
  Transmission Date: 20130627
  Serious: Yes (Hospitalization, Other)
  Sender: FDA-Public Use
  Company Number: IT-BRISTOL-MYERS SQUIBB COMPANY-17103961

PATIENT
  Age: 84 Year
  Sex: Female

DRUGS (3)
  1. COUMADIN TABS 5 MG [Suspect]
     Indication: DEEP VEIN THROMBOSIS
     Dosage: 1DF: 1 dosage unit
interrupted on 27Oct2012
     Route: 048
     Dates: start: 20010101
  2. CIPROXIN [Interacting]
     Indication: CHRONIC OBSTRUCTIVE PULMONARY DISEASE
     Dosage: interrupted on 27Oct2012
     Route: 048
     Dates: start: 20121025
  3. DELORAZEPAM [Concomitant]
     Route: 048

REACTIONS (4)
  - Hypocoagulable state [Recovered/Resolved]
  - Acute pulmonary oedema [Unknown]
  - Chronic obstructive pulmonary disease [Unknown]
  - Drug interaction [Unknown]
